FAERS Safety Report 6368175-5 (Version None)
Quarter: 2009Q3

REPORT INFORMATION
  Report Type: 
  Country: None (occurrence: None)
  Receive Date: 20090922
  Receipt Date: 20090911
  Transmission Date: 20100115
  Serious: Yes (Other)
  Sender: FDA-Public Use
  Company Number: PHHY2009PT39029

PATIENT
  Sex: Male

DRUGS (1)
  1. ZOMETA [Suspect]
     Indication: NEOPLASM PROSTATE
     Dosage: UNK
     Dates: start: 20080630, end: 20081125

REACTIONS (3)
  - BONE DISORDER [None]
  - DENTAL OPERATION [None]
  - OSTEONECROSIS [None]
